FAERS Safety Report 8084177-5 (Version None)
Quarter: 2012Q1

REPORT INFORMATION
  Report Type: 
  Country: None (occurrence: None)
  Receive Date: 20120128
  Receipt Date: 20110119
  Transmission Date: 20120608
  Serious: No
  Sender: FDA-Public Use
  Company Number: US-ABBOTT-11P-163-0699478-00

PATIENT
  Age: 61 Year
  Sex: Male

DRUGS (4)
  1. UNKNOWN MEDICATION FOR BIPOLAR [Concomitant]
     Indication: BIPOLAR DISORDER
  2. UNKNOWN MEDICATION FOR GOUT [Concomitant]
     Indication: GOUT
  3. HUMIRA [Suspect]
     Indication: PSORIASIS
     Dates: start: 20070101
  4. METHOTREXATE [Concomitant]
     Indication: PSORIASIS

REACTIONS (3)
  - INJECTION SITE DISCOLOURATION [None]
  - INJECTION SITE HAEMORRHAGE [None]
  - INJECTION SITE PAIN [None]
